FAERS Safety Report 11882399 (Version 4)
Quarter: 2016Q1

REPORT INFORMATION
  Report Type: Report from Study
  Country: TW (occurrence: TW)
  Receive Date: 20151231
  Receipt Date: 20160211
  Transmission Date: 20160526
  Serious: Yes (Hospitalization)
  Sender: FDA-Public Use
  Company Number: TW-ABBVIE-15K-153-1529876-00

PATIENT
  Age: 30 Year
  Sex: Male
  Weight: 67 kg

DRUGS (5)
  1. XAMIOL [Concomitant]
     Active Substance: BETAMETHASONE DIPROPIONATE\CALCIPOTRIENE HYDRATE
     Indication: PRODUCT USED FOR UNKNOWN INDICATION
  2. LEVOCETIRIZINE [Concomitant]
     Active Substance: LEVOCETIRIZINE
     Indication: PRODUCT USED FOR UNKNOWN INDICATION
  3. CYCLOSPORIN [Concomitant]
     Active Substance: CYCLOSPORINE
     Indication: PRODUCT USED FOR UNKNOWN INDICATION
  4. HUMIRA [Suspect]
     Active Substance: ADALIMUMAB
     Indication: PSORIASIS
     Route: 058
     Dates: start: 20140819, end: 20151201
  5. METHOTREXATE [Concomitant]
     Active Substance: METHOTREXATE
     Indication: PRODUCT USED FOR UNKNOWN INDICATION

REACTIONS (16)
  - Meningitis viral [Recovering/Resolving]
  - Dizziness [Unknown]
  - Tinnitus [Unknown]
  - Cryptococcosis [Unknown]
  - Headache [Recovering/Resolving]
  - Herpes virus infection [Unknown]
  - Pyrexia [Recovering/Resolving]
  - Cough [Unknown]
  - Hypoaesthesia [Unknown]
  - Tuberculosis [Unknown]
  - Gastrointestinal haemorrhage [Recovering/Resolving]
  - Leptospirosis [Unknown]
  - Haemoglobin decreased [Unknown]
  - Facial paralysis [Not Recovered/Not Resolved]
  - Nuchal rigidity [Unknown]
  - Facial pain [Unknown]

NARRATIVE: CASE EVENT DATE: 20151205
